FAERS Safety Report 4787014-7 (Version None)
Quarter: 2005Q3

REPORT INFORMATION
  Report Type: 
  Country: None (occurrence: None)
  Receive Date: 20050930
  Receipt Date: 20050922
  Transmission Date: 20060218
  Serious: Yes (Hospitalization)
  Sender: FDA-Public Use
  Company Number: 2005132330

PATIENT
  Age: 90 Year
  Sex: Male
  Weight: 64.8644 kg

DRUGS (1)
  1. BEXTRA [Suspect]
     Indication: ARTHRITIS
     Dosage: (1 IN 1 D), ORAL
     Route: 048
     Dates: start: 20030101, end: 20050901

REACTIONS (2)
  - ARTHRALGIA [None]
  - RENAL IMPAIRMENT [None]
